FAERS Safety Report 9871386 (Version 1)
Quarter: 2014Q1

REPORT INFORMATION
  Report Type: Spontaneous
  Country: US (occurrence: US)
  Receive Date: 20140205
  Receipt Date: 20140205
  Transmission Date: 20141002
  Serious: No
  Sender: FDA-Public Use
  Company Number: US-B.I. PHARMACEUTICALS,INC./RIDGEFIELD-2014-BI-04214BP

PATIENT
  Age: 54 Year
  Sex: Male
  Weight: 118 kg

DRUGS (8)
  1. SPIRIVA [Suspect]
     Indication: CHRONIC OBSTRUCTIVE PULMONARY DISEASE
     Dosage: 18 MCG
     Route: 048
     Dates: start: 2013
  2. SPIRIVA [Suspect]
     Dosage: 18 MCG
     Route: 055
     Dates: start: 2013
  3. ATENOLOL [Concomitant]
     Indication: HYPERTENSION
     Dosage: 50 MG
     Route: 048
  4. DULERA 100MCG/5 MCG [Concomitant]
     Indication: CHRONIC OBSTRUCTIVE PULMONARY DISEASE
     Dosage: 4 PUF
     Route: 055
  5. ALBUTEROL HFA 90 MCG [Concomitant]
     Indication: CHRONIC OBSTRUCTIVE PULMONARY DISEASE
     Route: 055
  6. OXYCODONE [Concomitant]
     Indication: BACK PAIN
     Dosage: 125 MG
     Route: 048
  7. SIMVASTATIN [Concomitant]
     Indication: BLOOD CHOLESTEROL INCREASED
     Dosage: 10 MG
     Route: 048
  8. BACLOFEN [Concomitant]
     Indication: MUSCLE SPASMS
     Dosage: 30 MG
     Route: 048

REACTIONS (2)
  - Sinusitis [Not Recovered/Not Resolved]
  - Incorrect route of drug administration [Recovered/Resolved]
